FAERS Safety Report 7785956-1 (Version None)
Quarter: 2011Q3

REPORT INFORMATION
  Report Type: 
  Country: None (occurrence: None)
  Receive Date: 20110929
  Receipt Date: 20110920
  Transmission Date: 20111222
  Serious: Yes (Hospitalization)
  Sender: FDA-Public Use
  Company Number: US-PFIZER INC-2011222763

PATIENT
  Age: 25 Year
  Sex: Male

DRUGS (1)
  1. SILDENAFIL CITRATE [Suspect]
     Indication: PRIAPISM
     Dosage: 50 MG, DAILY

REACTIONS (1)
  - SICKLE CELL ANAEMIA WITH CRISIS [None]
